FAERS Safety Report 16680161 (Version 2)
Quarter: 2019Q3

REPORT INFORMATION
  Report Type: Spontaneous
  Country: CZ (occurrence: CZ)
  Receive Date: 20190807
  Receipt Date: 20190812
  Transmission Date: 20191004
  Serious: Yes (Hospitalization)
  Sender: FDA-Public Use
  Company Number: CZ-BAUSCH-BL-2019-022540

PATIENT
  Age: 43 Year
  Sex: Male

DRUGS (1)
  1. KYNTHEUM (BRODALUMAB) [Suspect]
     Active Substance: BRODALUMAB
     Indication: PSORIASIS
     Dosage: DOSAGE: ACCORDING TO SMPC
     Route: 065
     Dates: start: 20190307, end: 20190425

REACTIONS (1)
  - Depression suicidal [Recovering/Resolving]

NARRATIVE: CASE EVENT DATE: 20190503
